FAERS Safety Report 5878260-X (Version None)
Quarter: 2008Q3

REPORT INFORMATION
  Report Type: 
  Country: None (occurrence: None)
  Receive Date: 20080911
  Receipt Date: 20080905
  Transmission Date: 20090109
  Serious: Yes (Hospitalization)
  Sender: FDA-Public Use
  Company Number: US-AVENTIS-200815292US

PATIENT
  Sex: Male
  Weight: 113.85 kg

DRUGS (13)
  1. LANTUS [Suspect]
     Route: 058
     Dates: start: 20080614
  2. LANTUS [Suspect]
     Route: 058
     Dates: start: 20080614
  3. GLYBURIDE [Concomitant]
     Dosage: DOSE: UNK
  4. METOPROLOL TARTRATE [Concomitant]
     Dates: start: 20040101
  5. ALTACE [Concomitant]
     Dates: start: 20050101
  6. IMDUR [Concomitant]
     Dates: start: 20040101
  7. PLAVIX [Concomitant]
     Dates: start: 20040101
  8. METFORMIN HCL [Concomitant]
     Dates: start: 20040101
  9. ASPIRIN [Concomitant]
     Dates: start: 20040101
  10. VITAMIN B6 [Concomitant]
     Dates: start: 20070101
  11. NITROGLYCERIN [Concomitant]
     Dates: start: 20080501
  12. GLUCOSAMINE SULFATE [Concomitant]
     Dosage: DOSE: 500-1000
  13. MULTI-VITAMINS [Concomitant]

REACTIONS (2)
  - BLOOD GLUCOSE INCREASED [None]
  - CHEST PAIN [None]
